FAERS Safety Report 6820250-4 (Version None)
Quarter: 2010Q3

REPORT INFORMATION
  Report Type: 
  Country: None (occurrence: None)
  Receive Date: 20100707
  Receipt Date: 20100628
  Transmission Date: 20110219
  Serious: Yes (Life-Threatening, Hospitalization)
  Sender: FDA-Public Use
  Company Number: GXKR2010NL07015

PATIENT
  Age: 75 Year
  Sex: Male

DRUGS (9)
  1. DIGOXIN [Interacting]
     Dosage: 7.125 MG, UNK
     Route: 048
  2. SOTALOL HCL [Suspect]
     Dosage: 7200 MG, UNK
     Route: 048
  3. ISOSORBIDE MONONITRATE [Interacting]
     Dosage: 6000 MG, UNK
     Route: 048
  4. ACENOCOUMAROL (NGX) [Suspect]
     Dosage: 98 MG, UNK
     Route: 048
  5. ATORVASTATIN CALCIUM [Suspect]
     Dosage: 1200 MG, UNK
     Route: 048
  6. PERINDOPRIL ERBUMINE [Suspect]
     Dosage: 200 MG, UNK
     Route: 048
  7. FUROSEMIDE (NGX) [Suspect]
     Dosage: 800 MG, UNK
     Route: 048
  8. AMLODIPINE [Suspect]
     Dosage: 300 MG, UNK
     Route: 048
  9. AMIODARONE HCL [Interacting]
     Indication: VENTRICULAR ARRHYTHMIA
     Route: 065

REACTIONS (12)
  - ANURIA [None]
  - CARDIAC PACEMAKER INSERTION [None]
  - CARDIOGENIC SHOCK [None]
  - DISORIENTATION [None]
  - DRUG INTERACTION [None]
  - HAEMODIALYSIS [None]
  - HYPOTENSION [None]
  - INTRA-AORTIC BALLOON PLACEMENT [None]
  - MECHANICAL VENTILATION [None]
  - MULTIPLE DRUG OVERDOSE [None]
  - RENAL FAILURE [None]
  - VENTRICULAR ARRHYTHMIA [None]
